FAERS Safety Report 5709672-2 (Version None)
Quarter: 2008Q2

REPORT INFORMATION
  Report Type: 
  Country: None (occurrence: None)
  Receive Date: 20080418
  Receipt Date: 20080409
  Transmission Date: 20081010
  Serious: Yes (Other)
  Sender: FDA-Public Use
  Company Number: AU-SANOFI-SYNTHELABO-A01200804026

PATIENT

DRUGS (2)
  1. STILNOX [Suspect]
     Indication: DRUG USE FOR UNKNOWN INDICATION
     Route: 048
  2. ALCOHOL [Concomitant]
     Dosage: A GLASS OF WINE
     Route: 048

REACTIONS (2)
  - ROAD TRAFFIC ACCIDENT [None]
  - SOMNAMBULISM [None]
